FAERS Safety Report 15669619 (Version 1)
Quarter: 2018Q4

REPORT INFORMATION
  Report Type: Spontaneous
  Country: CZ (occurrence: CZ)
  Receive Date: 20181129
  Receipt Date: 20181129
  Transmission Date: 20190205
  Serious: Yes (Other)
  Sender: FDA-Public Use
  Company Number: CZ-AMGEN-CZESP2018168985

PATIENT
  Sex: Female

DRUGS (13)
  1. REPATHA [Suspect]
     Active Substance: EVOLOCUMAB
     Indication: HYPERCHOLESTEROLAEMIA
     Dosage: UNK, Q4WK
     Route: 058
     Dates: start: 20180221
  2. ALLOPURINOL. [Concomitant]
     Active Substance: ALLOPURINOL
  3. ATROVENT [Concomitant]
     Active Substance: IPRATROPIUM BROMIDE
  4. VIGANTOL [Concomitant]
     Active Substance: CHOLECALCIFEROL
  5. PREDNISON [Concomitant]
     Active Substance: PREDNISONE
     Dosage: 5 MG, UNK
  6. AULIN [Concomitant]
     Active Substance: NIMESULIDE
  7. CONTROLOC [Concomitant]
     Active Substance: PANTOPRAZOLE SODIUM
  8. SINGULAIR [Concomitant]
     Active Substance: MONTELUKAST SODIUM
  9. REPATHA [Suspect]
     Active Substance: EVOLOCUMAB
     Dosage: UNK
     Route: 058
     Dates: start: 20181031, end: 20181031
  10. EZETROL [Concomitant]
     Active Substance: EZETIMIBE
  11. PARALEN [Concomitant]
     Active Substance: ACETAMINOPHEN
  12. IMUDON [Concomitant]
  13. ISOPTIN [Concomitant]
     Active Substance: VERAPAMIL HYDROCHLORIDE

REACTIONS (3)
  - Feeling hot [Recovered/Resolved]
  - Burning sensation [Recovered/Resolved]
  - Erythema [Recovered/Resolved]

NARRATIVE: CASE EVENT DATE: 201803
